FAERS Safety Report 21409211 (Version 1)
Quarter: 2022Q4

REPORT INFORMATION
  Report Type: Spontaneous
  Country: AU (occurrence: AU)
  Receive Date: 20221004
  Receipt Date: 20221004
  Transmission Date: 20230113
  Serious: Yes (Other)
  Sender: FDA-Public Use
  Company Number: None

PATIENT
  Sex: Male

DRUGS (3)
  1. DAPSONE [Suspect]
     Active Substance: DAPSONE
     Indication: Product used for unknown indication
  2. RIFAMPIN [Suspect]
     Active Substance: RIFAMPIN
     Indication: Product used for unknown indication
  3. PERINDOPRIL [Concomitant]
     Active Substance: PERINDOPRIL

REACTIONS (12)
  - Kidney fibrosis [Unknown]
  - Renal tubular necrosis [Unknown]
  - Abdominal discomfort [Unknown]
  - Acidosis [Unknown]
  - Anuria [Unknown]
  - Diarrhoea [Unknown]
  - Nausea [Unknown]
  - Proteinuria [Unknown]
  - Pyrexia [Unknown]
  - Renal tubular atrophy [Unknown]
  - Thrombocytopenia [Unknown]
  - Vomiting [Unknown]
